FAERS Safety Report 8248109-9 (Version None)
Quarter: 2012Q1

REPORT INFORMATION
  Report Type: 
  Country: None (occurrence: None)
  Receive Date: 20120330
  Receipt Date: 20120323
  Transmission Date: 20120608
  Serious: Yes (Hospitalization, Other)
  Sender: FDA-Public Use
  Company Number: US-BAYER-2011-052347

PATIENT
  Age: 20 Year
  Sex: Female
  Weight: 52.154 kg

DRUGS (2)
  1. YAZ [Suspect]
     Indication: ACNE
     Dosage: UNK
     Dates: start: 20061201, end: 20080401
  2. DROSPIRENONE AND ETHINYL ESTRADIOL [Suspect]

REACTIONS (11)
  - CHOLECYSTECTOMY [None]
  - DEPRESSION [None]
  - PAIN [None]
  - CHOLELITHIASIS [None]
  - ABDOMINAL DISTENSION [None]
  - CONSTIPATION [None]
  - ANXIETY [None]
  - FLATULENCE [None]
  - DYSPEPSIA [None]
  - SCAR [None]
  - DIARRHOEA [None]
